FAERS Safety Report 11545372 (Version 1)
Quarter: 2015Q3

REPORT INFORMATION
  Report Type: Spontaneous
  Country: IT (occurrence: IT)
  Receive Date: 20150924
  Receipt Date: 20150924
  Transmission Date: 20151125
  Serious: Yes (Disabling)
  Sender: FDA-Public Use
  Company Number: IT-TEVA-594994ACC

PATIENT
  Age: 65 Year
  Sex: Male

DRUGS (3)
  1. PANTOPRAZOLE SODIUM. [Suspect]
     Active Substance: PANTOPRAZOLE SODIUM
     Indication: PRODUCT USED FOR UNKNOWN INDICATION
     Dosage: 40 MILLIGRAM DAILY; 40 MG DAILY
     Route: 048
     Dates: start: 20150601, end: 20150914
  2. METHOTREXATE - 15 MG/2 ML SOLUZIONE INIETTABILE - PFIZER ITALIA S.R.L. [Interacting]
     Active Substance: METHOTREXATE SODIUM
     Indication: RHEUMATOID ARTHRITIS
     Dosage: 15 MG WEEKLY
     Route: 030
     Dates: start: 20060601, end: 20150903
  3. REMICADE [Interacting]
     Active Substance: INFLIXIMAB
     Indication: CROHN^S DISEASE
     Dosage: 5 MG/KG CYCLICAL
     Route: 042
     Dates: start: 20110428, end: 20150319

REACTIONS (3)
  - Multiple sclerosis [Unknown]
  - Drug interaction [Unknown]
  - Demyelination [Recovered/Resolved with Sequelae]

NARRATIVE: CASE EVENT DATE: 20150715
